FAERS Safety Report 11629169 (Version 1)
Quarter: 2015Q4

REPORT INFORMATION
  Report Type: Spontaneous
  Country: US (occurrence: None)
  Receive Date: 20151013
  Receipt Date: 20151013
  Transmission Date: 20160304
  Serious: Yes (Life-Threatening, Hospitalization)
  Sender: FDA-Public Use
  Company Number: None

PATIENT
  Age: 49 Year
  Sex: Female
  Weight: 79.38 kg

DRUGS (1)
  1. CARBAMAZEPINE 200MG TARO/GSMS [Suspect]
     Active Substance: CARBAMAZEPINE
     Indication: TRIGEMINAL NEURALGIA
     Dosage: 2 PILLS DAILY
     Route: 048
     Dates: start: 20150829, end: 20151007

REACTIONS (8)
  - Rash erythematous [None]
  - Asthenia [None]
  - Fatigue [None]
  - Liver function test abnormal [None]
  - Blister [None]
  - Urinary tract infection [None]
  - Abasia [None]
  - Skin disorder [None]

NARRATIVE: CASE EVENT DATE: 20150829
